APPROVED DRUG PRODUCT: FLOXIN IN DEXTROSE 5% IN PLASTIC CONTAINER
Active Ingredient: OFLOXACIN
Strength: 4MG/ML
Dosage Form/Route: INJECTABLE;INJECTION
Application: N020087 | Product #004
Applicant: ORTHO MCNEIL PHARMACEUTICAL INC
Approved: Mar 31, 1992 | RLD: No | RS: No | Type: DISCN